FAERS Safety Report 8301397-2 (Version None)
Quarter: 2012Q2

REPORT INFORMATION
  Report Type: 
  Country: None (occurrence: None)
  Receive Date: 20120420
  Receipt Date: 20120410
  Transmission Date: 20120825
  Serious: Yes (Hospitalization)
  Sender: FDA-Public Use
  Company Number: US-SANOFI-AVENTIS-2012SA021009

PATIENT
  Age: 82 Year
  Sex: Female
  Weight: 64 kg

DRUGS (16)
  1. NOVOLOG [Concomitant]
  2. PLAVIX [Concomitant]
  3. PROCRIT [Concomitant]
     Dosage: DOSE:40000 UNIT(S)
  4. LABETALOL HCL [Concomitant]
     Indication: BLOOD PRESSURE
  5. SIMVASTATIN [Concomitant]
  6. VITAMIN B6 [Concomitant]
  7. FOLIC ACID [Concomitant]
  8. PRILOSEC [Concomitant]
  9. LASIX [Concomitant]
  10. AMITRIPTYLINE HCL [Concomitant]
  11. LYRICA [Concomitant]
  12. VITAMIN B-12 [Concomitant]
  13. FOSINOPRIL SODIUM [Concomitant]
  14. LANTUS [Suspect]
     Dosage: EVERY MORNING WITH BREAKFAST DOSE:13 UNIT(S)
     Route: 058
     Dates: start: 20110101
  15. LEVOTHYROXINE SODIUM [Concomitant]
     Indication: THYROID DISORDER
  16. ALL OTHER THERAPEUTIC PRODUCTS [Concomitant]

REACTIONS (1)
  - CLOSTRIDIAL INFECTION [None]
